FAERS Safety Report 17822143 (Version 1)
Quarter: 2020Q2

REPORT INFORMATION
  Report Type: Report from Study
  Country: None (occurrence: US)
  Receive Date: 20200526
  Receipt Date: 20200526
  Transmission Date: 20200714
  Serious: Yes (Hospitalization, Other)
  Sender: FDA-Public Use
  Company Number: US-ABBVIE-20K-163-3414527-00

PATIENT
  Age: 36 Year
  Sex: Female

DRUGS (1)
  1. HUMIRA [Suspect]
     Active Substance: ADALIMUMAB
     Indication: HIDRADENITIS
     Route: 058

REACTIONS (15)
  - Gastric ulcer [Recovering/Resolving]
  - Hidradenitis [Recovering/Resolving]
  - Peripheral swelling [Recovering/Resolving]
  - Fall [Unknown]
  - Peripheral nerve injury [Unknown]
  - Foot fracture [Recovering/Resolving]
  - Dysstasia [Unknown]
  - Balance disorder [Unknown]
  - Joint injury [Unknown]
  - Guillain-Barre syndrome [Recovering/Resolving]
  - Limb injury [Unknown]
  - Pain in extremity [Unknown]
  - Fall [Recovering/Resolving]
  - Joint swelling [Recovering/Resolving]
  - Arthralgia [Unknown]

NARRATIVE: CASE EVENT DATE: 2016
